FAERS Safety Report 13021550 (Version 1)
Quarter: 2016Q4

REPORT INFORMATION
  Report Type: Other
  Country: US (occurrence: US)
  Receive Date: 20161213
  Receipt Date: 20161213
  Transmission Date: 20170207
  Serious: Yes (Other)
  Sender: FDA-Public Use
  Company Number: US-LUPIN PHARMACEUTICALS INC.-2016-04600

PATIENT
  Sex: 0

DRUGS (5)
  1. CIPROFLOXACIN. [Suspect]
     Active Substance: CIPROFLOXACIN
     Indication: BACTERAEMIA
     Route: 042
  2. CEFEPIME [Suspect]
     Active Substance: CEFEPIME HYDROCHLORIDE
     Indication: BACTERAEMIA
     Route: 065
  3. PIPERACILLIN/TAZOBACTAM [Suspect]
     Active Substance: PIPERACILLIN SODIUM\TAZOBACTAM SODIUM
     Indication: BACTERAEMIA
     Route: 042
  4. LINEZOLID. [Suspect]
     Active Substance: LINEZOLID
     Indication: BACTERAEMIA
     Route: 042
  5. MEROPENEM. [Suspect]
     Active Substance: MEROPENEM
     Indication: BACTERAEMIA
     Route: 042

REACTIONS (1)
  - Pancytopenia [Unknown]
